FAERS Safety Report 4766891-X (Version None)
Quarter: 2005Q3

REPORT INFORMATION
  Report Type: 
  Country: None (occurrence: None)
  Receive Date: 20050909
  Receipt Date: 20050825
  Transmission Date: 20060218
  Serious: Yes (Hospitalization, Other)
  Sender: FDA-Public Use
  Company Number: 2005110295

PATIENT
  Age: 33 Year
  Sex: Female

DRUGS (3)
  1. BEXTRA [Suspect]
     Indication: ABDOMINAL PAIN
     Dosage: 40 MG (40 MG, 2 IN 1 D), ORAL
     Route: 048
     Dates: start: 20050406, end: 20050408
  2. BEXTRA [Suspect]
     Indication: RENAL DISORDER
     Dosage: 40 MG (40 MG, 2 IN 1 D), ORAL
     Route: 048
     Dates: start: 20050406, end: 20050408
  3. BEXTRA [Suspect]
     Indication: UTERINE INFLAMMATION
     Dosage: 40 MG (40 MG, 2 IN 1 D), ORAL
     Route: 048
     Dates: start: 20050406, end: 20050408

REACTIONS (7)
  - ABORTION SPONTANEOUS [None]
  - ARRHYTHMIA [None]
  - CAESAREAN SECTION [None]
  - DRUG EXPOSURE DURING PREGNANCY [None]
  - DYSPNOEA [None]
  - PAIN [None]
  - UTERINE CONTRACTIONS DURING PREGNANCY [None]
